FAERS Safety Report 17136702 (Version 1)
Quarter: 2019Q4

REPORT INFORMATION
  Report Type: Spontaneous
  Country: US (occurrence: US)
  Receive Date: 20191210
  Receipt Date: 20191210
  Transmission Date: 20200122
  Serious: Yes (Other)
  Sender: FDA-Public Use
  Company Number: PHHY2019US228278

PATIENT
  Age: 44 Year
  Sex: Male

DRUGS (11)
  1. AZATHIOPRINE. [Suspect]
     Active Substance: AZATHIOPRINE
     Indication: IMMUNOSUPPRESSANT DRUG THERAPY
  2. TACROLIMUS. [Suspect]
     Active Substance: TACROLIMUS
     Indication: IMMUNOSUPPRESSANT DRUG THERAPY
     Dosage: 5 MG
     Route: 065
  3. PREDNISONE. [Suspect]
     Active Substance: PREDNISONE
     Indication: SMALL INTESTINE TRANSPLANT
     Dosage: 10 MG
     Route: 065
  4. PREDNISONE. [Suspect]
     Active Substance: PREDNISONE
     Indication: IMMUNOSUPPRESSANT DRUG THERAPY
  5. AZATHIOPRINE. [Suspect]
     Active Substance: AZATHIOPRINE
     Indication: SMALL INTESTINE TRANSPLANT
     Dosage: 100 MG
     Route: 065
  6. TACROLIMUS. [Suspect]
     Active Substance: TACROLIMUS
     Indication: SMALL INTESTINE TRANSPLANT
     Dosage: 6 MG
     Route: 065
  7. BASILIXIMAB [Suspect]
     Active Substance: BASILIXIMAB
     Indication: SMALL INTESTINE TRANSPLANT
     Dosage: 20 MG, Q2MO
     Route: 042
  8. SIROLIMUS. [Suspect]
     Active Substance: SIROLIMUS
     Indication: SMALL INTESTINE TRANSPLANT
     Dosage: 3 MG, QD
     Route: 065
  9. SIROLIMUS. [Suspect]
     Active Substance: SIROLIMUS
     Indication: IMMUNOSUPPRESSANT DRUG THERAPY
  10. TEDUGLUTIDE [Concomitant]
     Active Substance: TEDUGLUTIDE
     Indication: SMALL INTESTINE TRANSPLANT
     Dosage: 0.05 MG/KG, QD
     Route: 065
  11. BASILIXIMAB [Suspect]
     Active Substance: BASILIXIMAB
     Indication: IMMUNOSUPPRESSANT DRUG THERAPY

REACTIONS (7)
  - Fatigue [Unknown]
  - Product use in unapproved indication [Unknown]
  - Weight decreased [Unknown]
  - Transplant rejection [Unknown]
  - Gastrointestinal tract adenoma [Unknown]
  - Gastrointestinal bacterial overgrowth [Unknown]
  - Intestinal polyp [Unknown]
